FAERS Safety Report 5972319-4 (Version None)
Quarter: 2008Q4

REPORT INFORMATION
  Report Type: 
  Country: None (occurrence: None)
  Receive Date: 20081201
  Receipt Date: 20081013
  Transmission Date: 20090506
  Serious: No
  Sender: FDA-Public Use
  Company Number: US-TEVA-175768USA

PATIENT
  Sex: Female
  Weight: 88.076 kg

DRUGS (8)
  1. AZILECT [Suspect]
     Indication: PARKINSON'S DISEASE
     Dates: start: 20080718, end: 20080720
  2. LISINOPRIL [Concomitant]
  3. LEVOTHYROXINE SODIUM [Concomitant]
  4. DULOXETINE HYDROCHLORIDE [Concomitant]
  5. OTC INHALERS [Concomitant]
  6. CETIRIZINE HYDROCHLORIDE [Concomitant]
  7. INEGY [Concomitant]
  8. PYRIDOXINE HYDROCHLORIDE [Concomitant]

REACTIONS (3)
  - DERMATITIS [None]
  - HYPERSENSITIVITY [None]
  - URTICARIA [None]
